FAERS Safety Report 5739222-6 (Version None)
Quarter: 2008Q2

REPORT INFORMATION
  Report Type: 
  Country: None (occurrence: None)
  Receive Date: 20080515
  Receipt Date: 20080514
  Transmission Date: 20081010
  Serious: Yes (Hospitalization)
  Sender: FDA-Public Use
  Company Number: US-BAYER-200711690BWH

PATIENT
  Age: 68 Year
  Sex: Female
  Weight: 28 kg

DRUGS (25)
  1. SORAFENIB [Suspect]
     Indication: NON-SMALL CELL LUNG CANCER METASTATIC
     Dosage: TOTAL DAILY DOSE: 200 MG  UNIT DOSE: 200 MG
     Route: 048
     Dates: start: 20070330
  2. AVASTIN [Suspect]
     Indication: NON-SMALL CELL LUNG CANCER METASTATIC
     Route: 042
     Dates: start: 20070328, end: 20070328
  3. AVASTIN [Suspect]
     Route: 042
     Dates: start: 20070417, end: 20070417
  4. AVASTIN [Suspect]
     Route: 042
     Dates: start: 20070508, end: 20070508
  5. CARBOPLATIN [Suspect]
     Indication: NON-SMALL CELL LUNG CANCER METASTATIC
     Route: 042
     Dates: start: 20070417, end: 20070417
  6. CARBOPLATIN [Suspect]
     Route: 042
     Dates: start: 20070508, end: 20070508
  7. CARBOPLATIN [Suspect]
     Route: 042
     Dates: start: 20070328, end: 20070328
  8. TAXOL [Suspect]
     Indication: NON-SMALL CELL LUNG CANCER METASTATIC
     Route: 042
     Dates: start: 20070328, end: 20070328
  9. TAXOL [Suspect]
     Route: 042
     Dates: start: 20070508, end: 20070508
  10. TAXOL [Suspect]
     Route: 042
     Dates: start: 20070417, end: 20070417
  11. TOPROL-XL [Concomitant]
     Route: 048
  12. LIPITOR [Concomitant]
     Indication: BLOOD CHOLESTEROL INCREASED
     Route: 048
     Dates: start: 20061121
  13. ASPIRIN [Concomitant]
     Indication: CARDIOVASCULAR EVENT PROPHYLAXIS
     Route: 048
     Dates: start: 19940601
  14. MULTI-VITAMIN [Concomitant]
     Indication: VITAMIN SUPPLEMENTATION
     Route: 048
     Dates: start: 19620401
  15. ISRADIPINE [Concomitant]
     Indication: HYPERTENSION
     Route: 048
     Dates: start: 20020410
  16. CALCIUM CITRATE [Concomitant]
     Indication: MINERAL SUPPLEMENTATION
     Route: 048
     Dates: start: 20070309
  17. VITAMIN E [Concomitant]
     Indication: ROUTINE HEALTH MAINTENANCE
     Route: 048
     Dates: start: 20000420
  18. SELENIUM [Concomitant]
     Indication: VITAMIN SUPPLEMENTATION
     Route: 048
     Dates: start: 20000420
  19. GLUCOSAMINE CHONDROITIN [Concomitant]
     Indication: ROUTINE HEALTH MAINTENANCE
     Route: 048
     Dates: start: 20050429
  20. ACETAMINOPHEN [Concomitant]
     Indication: MUSCULOSKELETAL PAIN
     Route: 048
     Dates: start: 20070201
  21. DOCUSATE SODIUM [Concomitant]
     Indication: CONSTIPATION PROPHYLAXIS
     Route: 048
     Dates: start: 20070307
  22. PROCHLORPERAZINE [Concomitant]
     Indication: NAUSEA
     Route: 048
     Dates: start: 20070330
  23. HYDROCHLOROTHIAZIDE [Concomitant]
     Indication: HYPERTENSION
     Route: 048
     Dates: start: 20070525
  24. HYDROCHLOROTHIAZIDE [Concomitant]
     Route: 048
     Dates: start: 20070529, end: 20070501
  25. TRIAMTERENE AND HYDROCHLOROTHIAZIDE [Concomitant]
     Indication: HYPERTENSION
     Route: 048
     Dates: start: 20070412, end: 20070510

REACTIONS (10)
  - BLOOD POTASSIUM DECREASED [None]
  - BLOOD PRESSURE INADEQUATELY CONTROLLED [None]
  - DRUG INEFFECTIVE [None]
  - ENCEPHALOPATHY [None]
  - HYPONATRAEMIA [None]
  - INAPPROPRIATE ANTIDIURETIC HORMONE SECRETION [None]
  - LEUKOENCEPHALOPATHY [None]
  - NAUSEA [None]
  - NERVOUS SYSTEM DISORDER [None]
  - VOMITING [None]
